FAERS Safety Report 23525593 (Version 1)
Quarter: 2024Q1

REPORT INFORMATION
  Report Type: Spontaneous
  Country: FR (occurrence: FR)
  Receive Date: 20240215
  Receipt Date: 20240215
  Transmission Date: 20240410
  Serious: Yes (Life-Threatening, Other)
  Sender: FDA-Public Use
  Company Number: None

PATIENT

DRUGS (13)
  1. PROPOFOL [Suspect]
     Active Substance: PROPOFOL
     Dosage: 250MG PER HOUR
     Route: 042
     Dates: start: 20240117, end: 20240118
  2. PROPOFOL [Suspect]
     Active Substance: PROPOFOL
     Indication: Sedation
     Dosage: 250MG, PER HOUR
     Route: 042
     Dates: start: 20240110, end: 20240113
  3. PROPOFOL [Suspect]
     Active Substance: PROPOFOL
     Dosage: 300MG, PER HOUR
     Route: 042
     Dates: start: 20240104, end: 20240109
  4. PROPOFOL [Suspect]
     Active Substance: PROPOFOL
     Dosage: 300MG, PER HOUR
     Route: 042
     Dates: start: 20240114, end: 20240116
  5. AMOXICILLIN [Concomitant]
     Active Substance: AMOXICILLIN
     Indication: Infection
     Dosage: 1 GRAM, Q12H
     Route: 042
     Dates: start: 20240104, end: 20240109
  6. ATRACURIUM [Concomitant]
     Active Substance: ATRACURIUM
     Dosage: 50 MILLIGRAM, QH
     Route: 042
     Dates: start: 20240104, end: 20240109
  7. ATRACURIUM [Concomitant]
     Active Substance: ATRACURIUM
     Dosage: 60 MILLIGRAM, QH
     Route: 042
     Dates: start: 20240110, end: 20240114
  8. ATRACURIUM [Concomitant]
     Active Substance: ATRACURIUM
     Indication: Muscle tightness
     Dosage: 90 MILLIGRAM, QH
     Route: 042
     Dates: start: 20240115
  9. ENOXAPARIN SODIUM [Concomitant]
     Active Substance: ENOXAPARIN SODIUM
     Indication: Thrombosis prophylaxis
     Dosage: 4000 INTERNATIONAL UNIT, QD
     Route: 058
     Dates: start: 20240104
  10. ZOMETA [Concomitant]
     Active Substance: ZOLEDRONIC ACID
     Indication: Hypercalcaemia
     Dosage: 4000 INTERNATIONAL UNIT, QD
     Route: 058
     Dates: start: 20240104
  11. METHYLPREDNISOLONE [Interacting]
     Active Substance: METHYLPREDNISOLONE
     Indication: Respiratory distress
     Dosage: 60 MILLIGRAM, QD
     Route: 042
     Dates: start: 20240104, end: 20240116
  12. NOREPINEPHRINE [Interacting]
     Active Substance: NOREPINEPHRINE
     Dosage: 0.06 MICROGRAM/KILOGRAM, 1 MINUTE
     Route: 042
     Dates: start: 20240111, end: 20240113
  13. NOREPINEPHRINE [Interacting]
     Active Substance: NOREPINEPHRINE
     Indication: Haemodynamic instability
     Dosage: 0.28 MICROGRAM/KILOGRAM, 1 MINUTE
     Route: 042
     Dates: start: 20240104, end: 20240106

REACTIONS (2)
  - Propofol infusion syndrome [Not Recovered/Not Resolved]
  - Drug interaction [Not Recovered/Not Resolved]

NARRATIVE: CASE EVENT DATE: 20240119
